FAERS Safety Report 9389784 (Version 2)
Quarter: 2013Q3

REPORT INFORMATION
  Report Type: Spontaneous
  Country: US (occurrence: US)
  Receive Date: 20130708
  Receipt Date: 20130807
  Transmission Date: 20140515
  Serious: No
  Sender: FDA-Public Use
  Company Number: US-AMGEN-USASP2013043546

PATIENT
  Age: 52 Year
  Sex: Male
  Weight: 77.1 kg

DRUGS (5)
  1. ENBREL [Suspect]
     Indication: PSORIASIS
     Dosage: 50 MG, 2 TIMES/WK
     Route: 065
  2. ENBREL [Suspect]
     Indication: PSORIATIC ARTHROPATHY
  3. STELARA [Concomitant]
     Dosage: UNK
  4. HUMIRA [Concomitant]
     Dosage: UNK
  5. CELLCEPT                           /01275102/ [Concomitant]
     Dosage: UNK

REACTIONS (4)
  - Dental caries [Recovered/Resolved]
  - Skin plaque [Recovering/Resolving]
  - Drug ineffective [Not Recovered/Not Resolved]
  - Condition aggravated [Unknown]
